FAERS Safety Report 6599924-9 (Version None)
Quarter: 2010Q1

REPORT INFORMATION
  Report Type: 
  Country: None (occurrence: None)
  Receive Date: 20100217
  Receipt Date: 20100127
  Transmission Date: 20100710
  Serious: Yes (Hospitalization, Other)
  Sender: FDA-Public Use
  Company Number: 1000010074

PATIENT
  Age: 84 Year
  Sex: Male

DRUGS (5)
  1. MEMANTINE HCL [Suspect]
     Dates: end: 20090801
  2. MEMANTINE HCL [Suspect]
     Dates: start: 20091001
  3. LIPITOR [Concomitant]
  4. PLAVIX [Concomitant]
  5. WARFARIN SODIUM [Concomitant]

REACTIONS (7)
  - ABNORMAL DREAMS [None]
  - AGITATION [None]
  - ATROPHY [None]
  - BEREAVEMENT [None]
  - CEREBRAL ISCHAEMIA [None]
  - FALL [None]
  - PHARYNGITIS [None]
